FAERS Safety Report 23675257 (Version 5)
Quarter: 2025Q2

REPORT INFORMATION
  Report Type: Report from Study
  Country: CA (occurrence: CA)
  Receive Date: 20240327
  Receipt Date: 20250601
  Transmission Date: 20250717
  Serious: Yes (Hospitalization)
  Sender: ABBVIE
  Company Number: CA-ABBVIE-5690827

PATIENT
  Age: 73 Year
  Sex: Male
  Weight: 77 kg

DRUGS (27)
  1. VENETOCLAX [Suspect]
     Active Substance: VENETOCLAX
     Indication: Acute myeloid leukaemia
     Dosage: ADVERSE EVENT
     Route: 048
     Dates: start: 20240318, end: 20240318
  2. VENETOCLAX [Suspect]
     Active Substance: VENETOCLAX
     Indication: Acute myeloid leukaemia
     Dosage: DOSE MODIFICATION DONE FOR AE
     Route: 048
     Dates: start: 20240319, end: 20240409
  3. VENETOCLAX [Suspect]
     Active Substance: VENETOCLAX
     Indication: Acute myeloid leukaemia
     Dosage: OTHER (IF OTHER, SPECIFY: RAMP UP
     Route: 048
     Dates: start: 20240409, end: 20240409
  4. VENETOCLAX [Suspect]
     Active Substance: VENETOCLAX
     Indication: Acute myeloid leukaemia
     Dosage: END OF CYCLE
     Route: 048
     Dates: start: 20240410, end: 20240503
  5. VENETOCLAX [Suspect]
     Active Substance: VENETOCLAX
     Indication: Acute myeloid leukaemia
     Dosage: END OF CYCLE
     Route: 048
     Dates: start: 20240701, end: 20240728
  6. VENETOCLAX [Suspect]
     Active Substance: VENETOCLAX
     Indication: Acute myeloid leukaemia
     Dosage: END OF CYCLE
     Route: 048
     Dates: start: 20241015, end: 20241028
  7. VENETOCLAX [Suspect]
     Active Substance: VENETOCLAX
     Indication: Acute myeloid leukaemia
     Dosage: END OF CYCLE
     Route: 048
     Dates: start: 20241111, end: 20241124
  8. VENETOCLAX [Suspect]
     Active Substance: VENETOCLAX
     Indication: Acute myeloid leukaemia
     Dosage: END OF CYCLE
     Route: 048
     Dates: start: 20250210, end: 20250223
  9. VENETOCLAX [Suspect]
     Active Substance: VENETOCLAX
     Indication: Acute myeloid leukaemia
     Dosage: END OF CYCLE
     Route: 048
     Dates: start: 20240819, end: 20240915
  10. COVID-19 vaccine mRNA [Concomitant]
     Indication: COVID-19 immunisation
     Route: 030
  11. COVID-19 vaccine mRNA [Concomitant]
     Indication: COVID-19 immunisation
     Route: 030
  12. COVID-19 vaccine mRNA [Concomitant]
     Indication: COVID-19 immunisation
     Route: 030
  13. COVID-19 vaccine mRNA [Concomitant]
     Indication: COVID-19 immunisation
     Route: 030
  14. COVID-19 vaccine mRNA [Concomitant]
     Indication: COVID-19 immunisation
     Route: 030
  15. COVID-19 vaccine mRNA [Concomitant]
     Indication: COVID-19 immunisation
     Route: 030
  16. AZACITIDINE [Suspect]
     Active Substance: AZACITIDINE
     Indication: Product used for unknown indication
     Route: 065
     Dates: start: 20240415, end: 20240416
  17. AZACITIDINE [Suspect]
     Active Substance: AZACITIDINE
     Indication: Product used for unknown indication
     Dosage: (IF OTHER, SPECIFY: SITE NOT OPEN ON JULY 6,7 (WEEKEND)S)
     Route: 065
     Dates: start: 20240701, end: 20240705
  18. AZACITIDINE [Suspect]
     Active Substance: AZACITIDINE
     Indication: Product used for unknown indication
     Dosage: END OF CYCLE
     Route: 065
     Dates: start: 20240708, end: 20240709
  19. AZACITIDINE [Suspect]
     Active Substance: AZACITIDINE
     Indication: Product used for unknown indication
     Dosage: NONE
     Route: 065
     Dates: start: 20240819, end: 20240823
  20. AZACITIDINE [Suspect]
     Active Substance: AZACITIDINE
     Indication: Product used for unknown indication
     Dosage: END OF CYCLE
     Route: 065
     Dates: start: 20240826, end: 20240827
  21. AZACITIDINE [Suspect]
     Active Substance: AZACITIDINE
     Indication: Product used for unknown indication
     Dosage: (IF OTHER, SPECIFY: NO TREATMENT OVER WEEKEND DAYS AS SITE IS NOT OPEN)
     Route: 065
     Dates: start: 20241015, end: 20241018
  22. AZACITIDINE [Suspect]
     Active Substance: AZACITIDINE
     Indication: Product used for unknown indication
     Dosage: END OF CYCLE
     Route: 065
     Dates: start: 20241021, end: 20241022
  23. AZACITIDINE [Suspect]
     Active Substance: AZACITIDINE
     Indication: Product used for unknown indication
     Dosage: ADVERSE EVENT
     Route: 065
     Dates: start: 20240318, end: 20240318
  24. AZACITIDINE [Suspect]
     Active Substance: AZACITIDINE
     Indication: Product used for unknown indication
     Dosage: OTHER (IF OTHER, SPECIFY: SIT E NOT OPEN ON WEEKEND ?THEREFOR AZACITIDINE NOT ADMINISTERED APRIL ...
     Route: 065
     Dates: start: 20240409, end: 20240412
  25. AZACITIDINE [Suspect]
     Active Substance: AZACITIDINE
     Indication: Product used for unknown indication
     Dosage: (IF OTHER, SPECIFY: SITE NOT OPEN ON WEEKENDS THEREFORE DOSING DAYS ?INTERRUPTED 2 DAYS
     Route: 065
     Dates: start: 20241112, end: 20241115
  26. AZACITIDINE [Suspect]
     Active Substance: AZACITIDINE
     Indication: Product used for unknown indication
     Dosage: END OF CYCLE
     Route: 065
     Dates: start: 20241118, end: 20241119
  27. AZACITIDINE [Suspect]
     Active Substance: AZACITIDINE
     Indication: Product used for unknown indication
     Dosage: (IF OTHER, SPECIFY: SITE IS NOT OPEN ON WEEKENDS; DAY 8 OMITTED DUE TO MONDAY STAT HOLIDAY ON FEB...
     Route: 065
     Dates: start: 20250210, end: 20250214

REACTIONS (1)
  - Humerus fracture [Recovered/Resolved]

NARRATIVE: CASE EVENT DATE: 20240319
